FAERS Safety Report 13347140 (Version 2)
Quarter: 2017Q2

REPORT INFORMATION
  Report Type: Spontaneous
  Country: US (occurrence: US)
  Receive Date: 20170317
  Receipt Date: 20170406
  Transmission Date: 20170830
  Serious: No
  Sender: FDA-Public Use
  Company Number: US-PFIZER INC-2017110715

PATIENT
  Age: 82 Year
  Sex: Female

DRUGS (3)
  1. EUCRISA [Suspect]
     Active Substance: CRISABOROLE
     Indication: RASH
     Dosage: 2X/DAY
     Dates: start: 20170301
  2. WARFARIN [Concomitant]
     Active Substance: WARFARIN
     Indication: ATRIAL FIBRILLATION
     Dosage: 5 MG, UNK
     Dates: start: 20170105
  3. WARFARIN [Concomitant]
     Active Substance: WARFARIN
     Indication: CORONARY ARTERIAL STENT INSERTION

REACTIONS (3)
  - Drug ineffective [Not Recovered/Not Resolved]
  - Ocular discomfort [Unknown]
  - Rash [Not Recovered/Not Resolved]

NARRATIVE: CASE EVENT DATE: 20170301
